FAERS Safety Report 8006765-4 (Version None)
Quarter: 2011Q4

REPORT INFORMATION
  Report Type: 
  Country: None (occurrence: None)
  Receive Date: 20111227
  Receipt Date: 20111215
  Transmission Date: 20120403
  Serious: Yes (Hospitalization, Disabling, Other)
  Sender: FDA-Public Use
  Company Number: US-BAYER-2011-047448

PATIENT
  Age: 33 Year
  Sex: Female
  Weight: 53 kg

DRUGS (10)
  1. FLONASE [Concomitant]
     Dosage: 50 ?G, UNK
  2. ACETAMINOPHEN [Concomitant]
  3. MOTRIN [Concomitant]
     Indication: PAIN
     Dosage: UNK UNK, AS NEEDED
     Route: 048
  4. PERCOCET [Concomitant]
  5. YAZ [Suspect]
     Indication: CONTRACEPTION
     Dosage: UNK
     Dates: start: 20071101, end: 20080601
  6. MULTI-VITAMIN [Concomitant]
     Dosage: UNK UNK, QD
     Route: 048
  7. BACTRIM DS [Concomitant]
     Indication: URINARY TRACT INFECTION
  8. ZOMIG [Concomitant]
     Dosage: 5 MG, UNK
     Route: 048
  9. ZYRTEC [Concomitant]
  10. ZYRTEC EQ [Concomitant]
     Dosage: 10 MG, UNK
     Route: 048

REACTIONS (5)
  - ISCHAEMIC STROKE [None]
  - INJURY [None]
  - PAIN [None]
  - COGNITIVE DISORDER [None]
  - ADJUSTMENT DISORDER [None]
